FAERS Safety Report 5026801-7 (Version None)
Quarter: 2006Q2

REPORT INFORMATION
  Report Type: 
  Country: None (occurrence: None)
  Receive Date: 20060609
  Receipt Date: 20060511
  Transmission Date: 20061013
  Serious: Yes (Hospitalization)
  Sender: FDA-Public Use
  Company Number: GXKR2006GB02736

PATIENT
  Sex: Female

DRUGS (1)
  1. PROPAIN (NGX) (PARACETAMOL, CODEINE, DIPHENHYDRAMINE, CAFFEINE) CAPLET [Suspect]
     Indication: BONE PAIN
     Dosage: ORAL
     Route: 048

REACTIONS (2)
  - ABDOMINAL PAIN UPPER [None]
  - PNEUMONIA [None]
